FAERS Safety Report 6303757-8 (Version None)
Quarter: 2009Q3

REPORT INFORMATION
  Report Type: 
  Country: None (occurrence: None)
  Receive Date: 20090807
  Receipt Date: 20090807
  Transmission Date: 20100115
  Serious: No
  Sender: FDA-Public Use
  Company Number: None

PATIENT
  Sex: Female
  Weight: 47.6277 kg

DRUGS (1)
  1. WARFARIN SODIUM [Suspect]
     Indication: ATRIAL FIBRILLATION
     Dosage: SOME DAYS 3 OR 3 1/2 DAILY OTHER DAYS 4 ACORDING TO MY INR TEST

REACTIONS (11)
  - ASTHENIA [None]
  - CONTUSION [None]
  - DECREASED APPETITE [None]
  - HAEMORRHAGE [None]
  - HEADACHE [None]
  - PAIN IN EXTREMITY [None]
  - PRURITUS [None]
  - RASH [None]
  - SWELLING [None]
  - VISION BLURRED [None]
  - YELLOW SKIN [None]
